FAERS Safety Report 9593039 (Version 1)
Quarter: 2013Q4

REPORT INFORMATION
  Report Type: Spontaneous
  Country: US (occurrence: None)
  Receive Date: 20131002
  Receipt Date: 20131002
  Transmission Date: 20140711
  Serious: Yes (Death, Other)
  Sender: FDA-Public Use
  Company Number: CIP-2013-00167

PATIENT
  Sex: 0

DRUGS (3)
  1. CARBOPLATIN INJECTION DRY (CARBOPLATIN) [Suspect]
     Indication: BLADDER TRANSITIONAL CELL CARCINOMA
     Dosage: AUC 5 (DAY 1 OF 21)
  2. PACLITAXEL (PACLITAXEL) [Suspect]
     Indication: BLADDER TRANSITIONAL CELL CARCINOMA
     Dosage: DAY 1 OF 21 DAY
  3. GEMCITABINE (GEMCITABINE) [Suspect]
     Indication: BLADDER TRANSITIONAL CELL CARCINOMA
     Dosage: DAY 1 AND 8 OF 21

REACTIONS (5)
  - Febrile neutropenia [None]
  - Respiratory failure [None]
  - Renal failure [None]
  - Haemorrhage intracranial [None]
  - Thrombocytopenia [None]
